FAERS Safety Report 17325130 (Version 1)
Quarter: 2020Q1

REPORT INFORMATION
  Report Type: Spontaneous
  Country: US (occurrence: US)
  Receive Date: 20200126
  Receipt Date: 20200126
  Transmission Date: 20200409
  Serious: Yes (Hospitalization)
  Sender: FDA-Public Use
  Company Number: None

PATIENT
  Age: 55 Year
  Sex: Female
  Weight: 69.8 kg

DRUGS (1)
  1. EMPAGLIFLOZIN [Suspect]
     Active Substance: EMPAGLIFLOZIN
     Indication: TYPE 2 DIABETES MELLITUS
     Route: 048
     Dates: start: 20191122, end: 20191209

REACTIONS (5)
  - Mental status changes [None]
  - Hyperglycaemia [None]
  - Polydipsia [None]
  - Blood glucose increased [None]
  - Polyuria [None]

NARRATIVE: CASE EVENT DATE: 20191209
